FAERS Safety Report 8966377 (Version 2)
Quarter: 2013Q1

REPORT INFORMATION
  Report Type: Spontaneous
  Country: US (occurrence: US)
  Receive Date: 20121217
  Receipt Date: 20130115
  Transmission Date: 20140127
  Serious: Yes (Death, Other)
  Sender: FDA-Public Use
  Company Number: US-SANOFI-AVENTIS-2012SA090254

PATIENT
  Age: 84 Year
  Sex: Male
  Weight: 84.82 kg

DRUGS (21)
  1. ELITEK [Suspect]
     Indication: CHRONIC LYMPHOCYTIC LEUKAEMIA
     Dosage: 1.5MG VIAL AND 7.5MG VIAL.
     Route: 041
     Dates: start: 20121128, end: 20121128
  2. ELITEK [Suspect]
     Indication: CHRONIC LYMPHOCYTIC LEUKAEMIA
     Dosage: 1.5MG VIAL AND 7.5MG VIAL.
     Route: 041
     Dates: start: 20121128, end: 20121128
  3. BENDAMUSTINE HYDROCHLORIDE [Suspect]
     Route: 065
  4. RITUXAN [Suspect]
     Dosage: IN NS 253ML
     Route: 042
     Dates: start: 20121128, end: 20121128
  5. FEBUXOSTAT [Concomitant]
     Route: 048
     Dates: start: 20121114
  6. WARFARIN SODIUM [Concomitant]
     Route: 048
     Dates: start: 20101028
  7. FUROSEMIDE [Concomitant]
     Route: 048
  8. NAPROXEN [Concomitant]
     Route: 048
  9. PROTONIX [Concomitant]
     Route: 042
  10. SOTALOL HYDROCHLORIDE [Concomitant]
     Route: 048
  11. XALATAN [Concomitant]
     Dosage: SOLUTION OPHTHALMIC DAILY.
  12. ACETAMINOPHEN [Concomitant]
     Route: 048
     Dates: start: 20121127, end: 20121128
  13. DEXAMETHASONE SODIUM PHOSPHATE [Concomitant]
     Dosage: IN NORMALE SALINE
     Route: 042
     Dates: start: 20121127, end: 20121128
  14. BENADRYL /OLD FORM/ [Concomitant]
     Dosage: IN NORMAL SLAINE 100ML
     Route: 042
     Dates: start: 20121127, end: 20121128
  15. ANTIEMETICS AND ANTINAUSEANTS [Concomitant]
     Dosage: IN NORMAL SALINE 150ML
     Route: 042
     Dates: start: 20121127, end: 20121127
  16. HEPARIN SODIUM [Concomitant]
     Dosage: DOSE:500 UNIT(S)
     Dates: start: 20121127, end: 20121129
  17. LORAZEPAM [Concomitant]
     Route: 048
     Dates: start: 20121128, end: 20121128
  18. NEULASTA [Concomitant]
     Route: 058
     Dates: start: 20121129, end: 20121129
  19. NORMAL SALINE [Concomitant]
     Dosage: FLUSH
     Dates: start: 20100204, end: 20121129
  20. NORMAL SALINE [Concomitant]
     Route: 042
     Dates: start: 20121127, end: 20121127
  21. PALONOSETRON HYDROCHLORIDE [Concomitant]
     Dosage: IN NS 100ML
     Route: 042
     Dates: start: 20121127, end: 20121127

REACTIONS (5)
  - Respiratory failure [Fatal]
  - Renal failure [Fatal]
  - Unevaluable event [Unknown]
  - Haemolysis [Unknown]
  - Malaise [Unknown]
